FAERS Safety Report 5218922-0 (Version None)
Quarter: 2007Q1

REPORT INFORMATION
  Report Type: 
  Country: None (occurrence: None)
  Receive Date: 20070125
  Receipt Date: 20070117
  Transmission Date: 20070707
  Serious: Yes (Other)
  Sender: FDA-Public Use
  Company Number: US-AVENTIS-200618380US

PATIENT
  Sex: Male
  Weight: 76.2 kg

DRUGS (8)
  1. TAXOTERE [Suspect]
     Dosage: DOSE: UNK
     Route: 042
     Dates: start: 20060101
  2. GEMZAR [Suspect]
     Dosage: DOSE: UNK
     Dates: start: 20060101
  3. IFOSFAMIDE [Suspect]
     Dosage: DOSE: UNK
     Dates: start: 20030101, end: 20040101
  4. CISPLATIN [Suspect]
     Dosage: DOSE: UNK
     Dates: start: 20030101, end: 20040101
  5. OXYCONTIN [Concomitant]
     Dosage: DOSE: PRN; FREQUENCY: EVERY 6 TO 8 HOURS
     Route: 048
  6. TYLENOL [Concomitant]
     Dosage: DOSE: UNK
     Route: 048
  7. AMBIEN [Concomitant]
     Route: 048
  8. HERBAL PREPARATION [Concomitant]
     Dosage: DOSE: UNK

REACTIONS (5)
  - BLOOD CREATININE INCREASED [None]
  - BLOOD URINE PRESENT [None]
  - PROTEIN URINE PRESENT [None]
  - RENAL FAILURE [None]
  - RENAL TUBULAR NECROSIS [None]
